FAERS Safety Report 17164199 (Version 3)
Quarter: 2020Q1

REPORT INFORMATION
  Report Type: Spontaneous
  Country: US (occurrence: US)
  Receive Date: 20191217
  Receipt Date: 20200304
  Transmission Date: 20200409
  Serious: Yes (Hospitalization)
  Sender: FDA-Public Use
  Company Number: US-PFIZER INC-2019541845

PATIENT
  Age: 73 Year
  Sex: Female
  Weight: 77.98 kg

DRUGS (1)
  1. PREGABALIN. [Suspect]
     Active Substance: PREGABALIN
     Indication: FIBROMYALGIA
     Dosage: 50 MG, AS NEEDED (TAKE 1 TO 2 CAPSULES BY MOUTH ONCE DAILY AS NEEDED)
     Route: 048

REACTIONS (8)
  - Headache [Unknown]
  - Back pain [Recovered/Resolved]
  - Influenza like illness [Unknown]
  - Sinus congestion [Recovered/Resolved]
  - Chills [Recovered/Resolved]
  - Oropharyngeal pain [Unknown]
  - Somnolence [Unknown]
  - Pain in extremity [Recovered/Resolved]
